FAERS Safety Report 7090118-X (Version None)
Quarter: 2010Q4

REPORT INFORMATION
  Report Type: 
  Country: None (occurrence: None)
  Receive Date: 20101105
  Receipt Date: 20101105
  Transmission Date: 20110411
  Serious: No
  Sender: FDA-Public Use
  Company Number: None

PATIENT
  Age: 75 Year
  Sex: Female
  Weight: 69.5 kg

DRUGS (1)
  1. HYDROCHLOROTHIAZIDE [Suspect]
     Dosage: 12.5 MG DAILY ORAL
     Route: 048
     Dates: start: 20101005, end: 20101011

REACTIONS (3)
  - DIZZINESS [None]
  - RASH PAPULAR [None]
  - RASH PRURITIC [None]
